FAERS Safety Report 8578404-5 (Version None)
Quarter: 2012Q3

REPORT INFORMATION
  Report Type: 
  Country: None (occurrence: None)
  Receive Date: 20120726
  Receipt Date: 20120711
  Transmission Date: 20120928
  Serious: Yes (Other)
  Sender: FDA-Public Use
  Company Number: FK201201943

PATIENT
  Age: 38 Year
  Sex: Male

DRUGS (27)
  1. ARIPIPRAZOLE [Concomitant]
  2. FENTANYL [Concomitant]
  3. ONDANSETRON [Concomitant]
  4. METRONIDAZOLE [Concomitant]
  5. VANCOMYCIN [Concomitant]
  6. MEROPENEM [Concomitant]
  7. LORAZEPAM [Suspect]
     Indication: PARANOIA
     Dosage: 2 MG, INTRAVENOUS (NOT OTHERWISE SPECIFIED) 1 MG, AS NEEDED, INTRAVENOUS (NOT OTHERWISE SPECIFIED)
     Route: 042
  8. LORAZEPAM [Suspect]
     Indication: RESTLESSNESS
     Dosage: 2 MG, INTRAVENOUS (NOT OTHERWISE SPECIFIED) 1 MG, AS NEEDED, INTRAVENOUS (NOT OTHERWISE SPECIFIED)
     Route: 042
  9. MIRTAZAPINE [Concomitant]
  10. QUETIAPINE FUMARATE [Concomitant]
  11. PROPOFOL [Concomitant]
  12. PHENYLEPHRINE HCL [Concomitant]
  13. ZOLPIDEM [Concomitant]
  14. VENLAFAXINE XR (VENLAFAXINE) [Concomitant]
  15. ATENOLOL [Concomitant]
  16. EPHEDRINE SUL CAP [Concomitant]
  17. TAMSULOSIN HCL [Concomitant]
  18. MORPHINE [Concomitant]
  19. HALOPERIDOL [Suspect]
     Indication: RESTLESSNESS
     Dosage: 4 MG/KG, INTRAVENOUS (NOT OTHERWISE SPECIFIED) 5 MG, TWICE A DAY, INTRAVENOUS (NOT OTHERWISE SPECIFI
     Route: 042
  20. DEXAMETHASONE SODIUM PHOSPHATE [Concomitant]
  21. DOCUSATE (DOCUSATE) [Concomitant]
  22. MIDAZOLAM HCL [Concomitant]
  23. REMIFENTANIL (REMIFENTANIL) [Concomitant]
  24. SUCCINYLCHOLI8NE (SUXAMETHONIUM CHLORIDE) [Concomitant]
  25. CEFAZOLIN (CEFAZOLIN) [Concomitant]
  26. DEXAMETHASONE SODIUM PHOSPHATE [Concomitant]
  27. CEFTRIAXONE [Concomitant]

REACTIONS (7)
  - BLOOD CREATINE PHOSPHOKINASE INCREASED [None]
  - UNRESPONSIVE TO STIMULI [None]
  - CATATONIA [None]
  - MUTISM [None]
  - SOCIAL AVOIDANT BEHAVIOUR [None]
  - MUSCLE RIGIDITY [None]
  - WHITE BLOOD CELL COUNT INCREASED [None]
